FAERS Safety Report 13661508 (Version 1)
Quarter: 2017Q2

REPORT INFORMATION
  Report Type: Spontaneous
  Country: US (occurrence: US)
  Receive Date: 20170616
  Receipt Date: 20170616
  Transmission Date: 20170830
  Serious: No
  Sender: FDA-Public Use
  Company Number: US-US WORLDMEDS, LLC-USW201609-000659

PATIENT
  Age: 81 Year
  Sex: Male
  Weight: 90.71 kg

DRUGS (17)
  1. TIGAN [Concomitant]
     Active Substance: TRIMETHOBENZAMIDE HYDROCHLORIDE
     Dates: start: 201609
  2. CALCIUM [Concomitant]
     Active Substance: CALCIUM
  3. VALTREX [Concomitant]
     Active Substance: VALACYCLOVIR HYDROCHLORIDE
  4. CARBIDOPALLEVODOPA [Concomitant]
  5. NEUPRO [Concomitant]
     Active Substance: ROTIGOTINE
  6. ALLOPURINOL. [Concomitant]
     Active Substance: ALLOPURINOL
  7. LIPITOR [Concomitant]
     Active Substance: ATORVASTATIN CALCIUM
  8. VITAMIN B6 [Concomitant]
     Active Substance: PYRIDOXINE HYDROCHLORIDE
  9. REQUIP XL [Concomitant]
     Active Substance: ROPINIROLE HYDROCHLORIDE
  10. AZILECT [Concomitant]
     Active Substance: RASAGILINE MESYLATE
  11. CALCIUM [Concomitant]
     Active Substance: CALCIUM
  12. HYDROCHLOROTHIAZIDE. [Concomitant]
     Active Substance: HYDROCHLOROTHIAZIDE
  13. MIRALEX [Concomitant]
  14. VITAMIN D3 [Concomitant]
     Active Substance: CHOLECALCIFEROL
  15. CARBIDOPALLEVODOPA [Concomitant]
  16. APOKYN [Suspect]
     Active Substance: APOMORPHINE HYDROCHLORIDE
     Indication: PARKINSON^S DISEASE
     Route: 058
     Dates: start: 201609
  17. LISINOPRIL. [Concomitant]
     Active Substance: LISINOPRIL

REACTIONS (1)
  - Drug effect incomplete [Recovering/Resolving]

NARRATIVE: CASE EVENT DATE: 20160916
